FAERS Safety Report 9855001 (Version 2)
Quarter: 2014Q1

REPORT INFORMATION
  Report Type: Spontaneous
  Country: BR (occurrence: BR)
  Receive Date: 20140130
  Receipt Date: 20140130
  Transmission Date: 20141002
  Serious: Yes (Other)
  Sender: FDA-Public Use
  Company Number: BR-AMGEN-BRASP2013079855

PATIENT
  Age: 11 Year
  Sex: Female
  Weight: 31 kg

DRUGS (5)
  1. ENBREL [Suspect]
     Indication: JUVENILE IDIOPATHIC ARTHRITIS
     Dosage: 50 MG, WEEKLY
     Route: 058
     Dates: start: 200810
  2. ENBREL [Suspect]
     Dosage: 50 MG, WEEKLY
     Route: 058
  3. METHOTREXATE SODIUM [Suspect]
     Indication: PRODUCT USED FOR UNKNOWN INDICATION
     Dosage: UNK
     Route: 065
  4. LEFLUNOMIDE [Suspect]
     Indication: PRODUCT USED FOR UNKNOWN INDICATION
     Dosage: UNK
     Route: 065
  5. AZATHIOPRINE [Suspect]
     Indication: PRODUCT USED FOR UNKNOWN INDICATION
     Dosage: UNK
     Route: 065

REACTIONS (6)
  - Juvenile idiopathic arthritis [Unknown]
  - Drug ineffective [Unknown]
  - Injection site erythema [Recovered/Resolved]
  - Injection site pain [Recovered/Resolved]
  - Wrong technique in drug usage process [Unknown]
  - Injection site pruritus [Unknown]
